FAERS Safety Report 6049312-9 (Version None)
Quarter: 2009Q1

REPORT INFORMATION
  Report Type: 
  Country: None (occurrence: None)
  Receive Date: 20090123
  Receipt Date: 20090114
  Transmission Date: 20090719
  Serious: Yes (Hospitalization, Other)
  Sender: FDA-Public Use
  Company Number: ID-ROXANE LABORATORIES, INC.-2009-RO-00064RO

PATIENT
  Age: 41 Year
  Sex: Male
  Weight: 53 kg

DRUGS (5)
  1. CYCLOPHOSPHAMIDE [Suspect]
     Indication: MULTIPLE MYELOMA
     Dosage: 400MG
     Dates: start: 20050301, end: 20050801
  2. DEXAMETHASONE [Suspect]
     Indication: MULTIPLE MYELOMA
     Dosage: 40MG
     Dates: start: 20050301, end: 20050801
  3. HERBAL NERVE TONIC LIQUID [Concomitant]
  4. ANALGESIC [Concomitant]
  5. URSODIOL [Concomitant]
     Indication: HEPATIC STEATOSIS

REACTIONS (6)
  - ANAEMIA [None]
  - FATIGUE [None]
  - FIBROSIS [None]
  - HEPATIC ENZYME INCREASED [None]
  - HEPATIC STEATOSIS [None]
  - MYELOMA RECURRENCE [None]
